FAERS Safety Report 9032313 (Version 1)
Quarter: 2013Q1

REPORT INFORMATION
  Report Type: Spontaneous
  Country: BR (occurrence: BR)
  Receive Date: 20130122
  Receipt Date: 20130122
  Transmission Date: 20140127
  Serious: Yes (Other)
  Sender: FDA-Public Use
  Company Number: BR-ELI_LILLY_AND_COMPANY-BR201301000473

PATIENT
  Age: 77 Year
  Sex: Female
  Weight: 44 kg

DRUGS (7)
  1. ZYMAR [Concomitant]
     Dosage: UNK, UNKNOWN
     Route: 065
     Dates: start: 201212, end: 201212
  2. FORTEO [Suspect]
     Indication: OSTEOPOROSIS
     Dosage: UNK, QD
     Route: 058
     Dates: start: 201205
  3. FORTEO [Suspect]
     Dosage: UNK, QD
     Route: 058
     Dates: end: 20130102
  4. CALCIUM CITRATE [Concomitant]
     Indication: OSTEOPOROSIS
     Dosage: UNK, UNKNOWN
     Route: 065
  5. AKINETON                           /00079501/ [Concomitant]
     Indication: PARKINSON^S DISEASE
     Dosage: UNK, UNKNOWN
     Route: 065
  6. HIDROCLOROTIAZIDA [Concomitant]
     Indication: DIURETIC THERAPY
     Dosage: UNK, UNKNOWN
     Route: 065
  7. PURAN T4 [Concomitant]
     Indication: THYROID DISORDER
     Dosage: UNK, UNKNOWN
     Route: 065

REACTIONS (5)
  - Cataract [Not Recovered/Not Resolved]
  - Agitation [Not Recovered/Not Resolved]
  - Eye inflammation [Not Recovered/Not Resolved]
  - Visual impairment [Not Recovered/Not Resolved]
  - Drug dose omission [Not Recovered/Not Resolved]
